FAERS Safety Report 7007685-4 (Version None)
Quarter: 2010Q3

REPORT INFORMATION
  Report Type: 
  Country: None (occurrence: None)
  Receive Date: 20100922
  Receipt Date: 20100914
  Transmission Date: 20110219
  Serious: Yes (Other)
  Sender: FDA-Public Use
  Company Number: US-AMGEN-KDL431613

PATIENT
  Sex: Female
  Weight: 55 kg

DRUGS (3)
  1. NPLATE [Suspect]
     Indication: IDIOPATHIC THROMBOCYTOPENIC PURPURA
     Route: 058
     Dates: start: 20091028, end: 20100428
  2. OXYCODONE HCL [Concomitant]
     Route: 048
  3. DEXAMETHASONE [Concomitant]
     Dates: start: 20100415

REACTIONS (6)
  - BLOOD COUNT ABNORMAL [None]
  - IRON DEFICIENCY [None]
  - LEUKOCYTOSIS [None]
  - MICROCYTIC ANAEMIA [None]
  - MYELODYSPLASTIC SYNDROME [None]
  - THERAPEUTIC RESPONSE DECREASED [None]
